FAERS Safety Report 15854340 (Version 1)
Quarter: 2019Q1

REPORT INFORMATION
  Report Type: Report from Study
  Country: RU (occurrence: RU)
  Receive Date: 20190122
  Receipt Date: 20190122
  Transmission Date: 20190417
  Serious: Yes (Other)
  Sender: FDA-Public Use
  Company Number: RU-UCBSA-2017003458

PATIENT
  Age: 28 Year
  Sex: Male

DRUGS (4)
  1. PERAMPANEL [Interacting]
     Active Substance: PERAMPANEL
     Indication: LENNOX-GASTAUT SYNDROME
  2. LEVETIRACETAM. [Interacting]
     Active Substance: LEVETIRACETAM
     Indication: LENNOX-GASTAUT SYNDROME
  3. LEVETIRACETAM. [Suspect]
     Active Substance: LEVETIRACETAM
     Indication: EPILEPSY
     Dosage: UNKNOWN DOSE
  4. PERAMPANEL [Interacting]
     Active Substance: PERAMPANEL
     Indication: EPILEPSY
     Dosage: UP-TITRATION OF PERAMPANEL

REACTIONS (2)
  - Drug interaction [Recovered/Resolved]
  - Hostility [Recovered/Resolved]
